FAERS Safety Report 13757408 (Version 2)
Quarter: 2019Q1

REPORT INFORMATION
  Report Type: Spontaneous
  Country: DE (occurrence: DE)
  Receive Date: 20170716
  Receipt Date: 20190109
  Transmission Date: 20190417
  Serious: Yes (Other)
  Sender: FDA-Public Use
  Company Number: PHHY2017DE103738

PATIENT
  Sex: Female

DRUGS (4)
  1. RITALIN LA [Suspect]
     Active Substance: METHYLPHENIDATE HYDROCHLORIDE
     Indication: ATTENTION DEFICIT/HYPERACTIVITY DISORDER
     Dosage: 30 MG, UNK
     Route: 065
     Dates: start: 2015
  2. RITALIN LA [Suspect]
     Active Substance: METHYLPHENIDATE HYDROCHLORIDE
     Dosage: 40 MG, QD (AT THE TIME OF REPORTING: DURING THE WEEK: 1X 40 MG DUE TO SUPPLY ISSUES OF RITALIN)
     Route: 065
  3. RITALIN LA [Suspect]
     Active Substance: METHYLPHENIDATE HYDROCHLORIDE
     Dosage: 40 MG, BID
     Route: 065
  4. RITALIN LA [Suspect]
     Active Substance: METHYLPHENIDATE HYDROCHLORIDE
     Indication: FATIGUE
     Dosage: 40 MG, QD
     Route: 065

REACTIONS (4)
  - Breast cancer [Unknown]
  - Product use in unapproved indication [Unknown]
  - Fatigue [Unknown]
  - Underdose [Unknown]
